FAERS Safety Report 5803863-8 (Version None)
Quarter: 2008Q3

REPORT INFORMATION
  Report Type: 
  Country: None (occurrence: None)
  Receive Date: 20080708
  Receipt Date: 20080626
  Transmission Date: 20090109
  Serious: Yes (Hospitalization)
  Sender: FDA-Public Use
  Company Number: FR-PFIZER INC-2006067913

PATIENT
  Sex: Male

DRUGS (14)
  1. SU-011,248 [Suspect]
     Indication: METASTATIC RENAL CELL CARCINOMA
     Route: 048
  2. AMLOR [Concomitant]
     Route: 048
  3. TAREG [Concomitant]
     Route: 048
  4. ACEBUTOLOL [Concomitant]
     Route: 048
  5. KARDEGIC [Concomitant]
     Route: 048
  6. BUFLOMEDIL [Concomitant]
     Route: 048
  7. PAROXETINE HCL [Concomitant]
     Route: 048
  8. AUGMENTIN '125' [Concomitant]
     Route: 048
     Dates: start: 20060214, end: 20060228
  9. DURAGESIC-100 [Concomitant]
     Route: 050
  10. EUPRESSYL [Concomitant]
     Route: 048
  11. MORPHINE [Concomitant]
     Route: 048
  12. DOMPERIDONE [Concomitant]
     Route: 048
  13. DOLIPRANE [Concomitant]
     Route: 048
     Dates: start: 20060201, end: 20060201
  14. ZOMETA [Concomitant]
     Route: 048

REACTIONS (2)
  - ARTERITIS [None]
  - ESCHAR [None]
